FAERS Safety Report 5134733-9 (Version None)
Quarter: 2006Q4

REPORT INFORMATION
  Report Type: 
  Country: None (occurrence: None)
  Receive Date: 20061025
  Receipt Date: 20060622
  Transmission Date: 20070319
  Serious: Yes (Death)
  Sender: FDA-Public Use
  Company Number: US-ROCHE-453061

PATIENT
  Age: 63 Year
  Sex: Female
  Weight: 66.9 kg

DRUGS (1)
  1. TOCILIZUMAB [Suspect]
     Indication: RHEUMATOID ARTHRITIS
     Route: 042
     Dates: start: 20050914

REACTIONS (3)
  - BRONCHOPNEUMONIA [None]
  - DEATH [None]
  - SPINAL FUSION SURGERY [None]
